FAERS Safety Report 19479629 (Version 1)
Quarter: 2021Q2

REPORT INFORMATION
  Report Type: Report from Study
  Country: IN (occurrence: IN)
  Receive Date: 20210630
  Receipt Date: 20210630
  Transmission Date: 20210717
  Serious: Yes (Hospitalization)
  Sender: FDA-Public Use
  Company Number: IN-EISAI MEDICAL RESEARCH-EC-2021-095208

PATIENT
  Age: 64 Year
  Sex: Male

DRUGS (4)
  1. LENVIMA [Suspect]
     Active Substance: LENVATINIB
     Dosage: DOSE: 4/8MG EVERY ALTERNATE DAY
     Route: 048
     Dates: start: 202102, end: 2021
  2. LENVIMA [Suspect]
     Active Substance: LENVATINIB
     Route: 048
     Dates: start: 2021, end: 20210602
  3. LENVIMA [Suspect]
     Active Substance: LENVATINIB
     Indication: HEPATOCELLULAR CARCINOMA
     Route: 048
     Dates: start: 20200706, end: 202101
  4. LENVIMA [Suspect]
     Active Substance: LENVATINIB
     Route: 048
     Dates: start: 20210623

REACTIONS (4)
  - Blood sodium decreased [Recovering/Resolving]
  - Haemoglobin decreased [Recovering/Resolving]
  - Lower gastrointestinal haemorrhage [Recovering/Resolving]
  - Gastric infection [Recovering/Resolving]

NARRATIVE: CASE EVENT DATE: 20210602
